FAERS Safety Report 8616089-X (Version None)
Quarter: 2012Q3

REPORT INFORMATION
  Report Type: 
  Country: None (occurrence: None)
  Receive Date: 20120823
  Receipt Date: 20120808
  Transmission Date: 20120928
  Serious: Yes (Disabling)
  Sender: FDA-Public Use
  Company Number: FR-ROCHE-1099552

PATIENT
  Age: 41 Year
  Sex: Male

DRUGS (13)
  1. NEXIUM [Suspect]
     Indication: PROPHYLAXIS AGAINST GASTROINTESTINAL ULCER
     Route: 048
     Dates: start: 20070925
  2. MOVIPREP [Suspect]
     Indication: CONSTIPATION
     Route: 048
     Dates: start: 20070925
  3. PAROXETINE HCL [Concomitant]
     Indication: DEPRESSION
     Route: 048
  4. NEORAL [Suspect]
     Indication: LUNG TRANSPLANT
     Route: 048
     Dates: end: 20071002
  5. PREDNISOLONE [Suspect]
     Indication: LUNG TRANSPLANT
     Route: 048
     Dates: start: 20070924
  6. LOVENOX [Suspect]
     Indication: PRODUCT USED FOR UNKNOWN INDICATION
     Route: 058
     Dates: start: 20070925
  7. OXACILLIN [Suspect]
     Indication: STAPHYLOCOCCAL INFECTION
     Route: 048
     Dates: start: 20070919, end: 20071107
  8. ATARAX [Concomitant]
     Indication: ANXIETY
     Route: 048
  9. VALGANCICLOVIR [Suspect]
     Indication: PRODUCT USED FOR UNKNOWN INDICATION
     Route: 048
     Dates: start: 20070924, end: 20071105
  10. COLY-MYCIN S OPHTHALMIC DROPS [Suspect]
     Indication: CYSTIC FIBROSIS
     Route: 045
     Dates: start: 20070925
  11. ZOLPIDEM [Concomitant]
     Indication: INSOMNIA
     Route: 048
  12. CREON [Suspect]
     Indication: PANCREATIC INSUFFICIENCY
     Route: 048
     Dates: start: 20070925
  13. KEPPRA [Suspect]
     Indication: EPILEPSY
     Route: 048
     Dates: start: 20070730

REACTIONS (1)
  - OPTIC NEURITIS [None]
